FAERS Safety Report 4382025-8 (Version None)
Quarter: 2004Q2

REPORT INFORMATION
  Report Type: 
  Country: None (occurrence: None)
  Receive Date: 20040615
  Receipt Date: 20040603
  Transmission Date: 20050107
  Serious: Yes (Death)
  Sender: FDA-Public Use
  Company Number: CEL-2004-00749-ROC

PATIENT
  Age: 27 Day
  Sex: Male
  Weight: 2.92 kg

DRUGS (1)
  1. TUSSIONEX [Suspect]
     Indication: NEONATAL ASPHYXIA
     Dosage: 2.5ML, ONCE
     Dates: start: 20040201, end: 20040201

REACTIONS (8)
  - DRUG TOXICITY [None]
  - MEDICATION ERROR [None]
  - NEONATAL DISORDER [None]
  - PETECHIAE [None]
  - PLEURAL DISORDER [None]
  - POOR WEIGHT GAIN NEONATAL [None]
  - THYMUS DISORDER [None]
  - TOXICOLOGIC TEST ABNORMAL [None]
